FAERS Safety Report 9432747 (Version 1)
Quarter: 2013Q3

REPORT INFORMATION
  Report Type: Spontaneous
  Country: US (occurrence: None)
  Receive Date: 20130729
  Receipt Date: 20130729
  Transmission Date: 20140515
  Serious: Yes (Other)
  Sender: FDA-Public Use
  Company Number: AUR-APL-2013-06176

PATIENT
  Age: 54 Year
  Sex: Female

DRUGS (2)
  1. HYDROCHLOROTHIAZIDE [Suspect]
     Indication: HYPERTENSION
     Dosage: 1 D
     Dates: start: 20081202, end: 20130618
  2. LYRICA (PREGABALIN) [Suspect]
     Indication: FIBROMYALGIA
     Dosage: 150 TO 200 MG, 3X/DAY, ORAL
     Route: 048
     Dates: start: 200806

REACTIONS (4)
  - Fluid retention [None]
  - Haemodilution [None]
  - Blood sodium increased [None]
  - Hyponatraemia [None]
